FAERS Safety Report 22139325 (Version 3)
Quarter: 2023Q2

REPORT INFORMATION
  Report Type: Spontaneous
  Country: PL (occurrence: PL)
  Receive Date: 20230327
  Receipt Date: 20230531
  Transmission Date: 20230722
  Serious: Yes (Hospitalization, Other)
  Sender: FDA-Public Use
  Company Number: None

PATIENT
  Age: 2 Year
  Sex: Female

DRUGS (3)
  1. MOMETASONE FUROATE [Suspect]
     Active Substance: MOMETASONE FUROATE
     Indication: Dermatitis atopic
     Dosage: APPROXIMATELY SIX MONTHS OF AGE TO 4 YEARS OINTMENT WAS APPLIED, INITIALLY TO THE SCALP, AND THEN TO
     Route: 061
  2. PIMECROLIMUS [Suspect]
     Active Substance: PIMECROLIMUS
     Indication: Dermatitis atopic
     Dosage: ON THE FACE
     Route: 061
  3. METHYLPREDNISOLONE ACEPONATE [Suspect]
     Active Substance: METHYLPREDNISOLONE ACEPONATE
     Indication: Dermatitis atopic
     Dosage: ON THE WHOLE BODY WERE APPLIED
     Route: 061

REACTIONS (2)
  - Cushing^s syndrome [Recovered/Resolved]
  - Growth retardation [Recovered/Resolved]
